FAERS Safety Report 9089080 (Version 1)
Quarter: 2013Q1

REPORT INFORMATION
  Report Type: Report from Study
  Country: US (occurrence: US)
  Receive Date: 20130130
  Receipt Date: 20130130
  Transmission Date: 20140127
  Serious: Yes (Hospitalization)
  Sender: FDA-Public Use
  Company Number: US-ABBOTT-12P-163-0972675-00

PATIENT
  Age: 56 None
  Sex: Female

DRUGS (2)
  1. HUMIRA [Suspect]
     Indication: RHEUMATOID ARTHRITIS
     Route: 058
     Dates: start: 20120404, end: 201205
  2. HUMIRA [Suspect]
     Route: 058
     Dates: start: 201208

REACTIONS (3)
  - Pneumonia [Recovered/Resolved]
  - Dehydration [Not Recovered/Not Resolved]
  - Sinusitis [Recovered/Resolved]
